FAERS Safety Report 14349920 (Version 1)
Quarter: 2018Q1

REPORT INFORMATION
  Report Type: Spontaneous
  Country: IE (occurrence: IE)
  Receive Date: 20180103
  Receipt Date: 20180103
  Transmission Date: 20180509
  Serious: No
  Sender: FDA-Public Use
  Company Number: None

PATIENT
  Age: 76 Year
  Sex: Male
  Weight: 98.1 kg

DRUGS (1)
  1. JARDIANCE [Suspect]
     Active Substance: EMPAGLIFLOZIN

REACTIONS (4)
  - Therapy cessation [None]
  - Loss of consciousness [None]
  - Scrotal irritation [None]
  - Arthropathy [None]

NARRATIVE: CASE EVENT DATE: 20161107
